FAERS Safety Report 13117042 (Version 4)
Quarter: 2017Q2

REPORT INFORMATION
  Report Type: Report from Study
  Country: JP (occurrence: JP)
  Receive Date: 20170116
  Receipt Date: 20170623
  Transmission Date: 20170830
  Serious: Yes (Death, Other)
  Sender: FDA-Public Use
  Company Number: PHJP2016JP036638

PATIENT
  Age: 44 Year
  Sex: Female

DRUGS (8)
  1. MEKINIST [Suspect]
     Active Substance: TRAMETINIB DIMETHYL SULFOXIDE
     Dosage: 2 MG, QD
     Route: 048
     Dates: start: 20161122
  2. TAFINLAR [Suspect]
     Active Substance: DABRAFENIB MESYLATE
     Dosage: 75 MG, QD
     Route: 048
     Dates: start: 20170424, end: 20170505
  3. MEKINIST [Suspect]
     Active Substance: TRAMETINIB DIMETHYL SULFOXIDE
     Indication: MALIGNANT MELANOMA STAGE IV
     Dosage: 4 MG, QD
     Route: 048
     Dates: start: 20160614, end: 20161121
  4. MEKINIST [Suspect]
     Active Substance: TRAMETINIB DIMETHYL SULFOXIDE
     Dosage: 2 MG, QD
     Route: 048
     Dates: start: 20170424, end: 20170505
  5. TAFINLAR [Suspect]
     Active Substance: DABRAFENIB MESYLATE
     Dosage: 75 MG, QD
     Route: 048
     Dates: start: 20161122
  6. TAFINLAR [Suspect]
     Active Substance: DABRAFENIB MESYLATE
     Dosage: 150 MG, QD
     Route: 048
     Dates: start: 20170328, end: 20170423
  7. MEKINIST [Suspect]
     Active Substance: TRAMETINIB DIMETHYL SULFOXIDE
     Dosage: 4 MG, QD
     Route: 048
     Dates: start: 20170328, end: 20170423
  8. TAFINLAR [Suspect]
     Active Substance: DABRAFENIB MESYLATE
     Indication: MALIGNANT MELANOMA STAGE IV
     Dosage: 150 MG, QD
     Route: 048
     Dates: start: 20160614, end: 20161121

REACTIONS (8)
  - Malignant melanoma stage IV [Fatal]
  - Malignant neoplasm progression [Fatal]
  - Eye symptom [Not Recovered/Not Resolved]
  - Uveitis [Recovered/Resolved]
  - Visual acuity reduced [Unknown]
  - Conjunctival hyperaemia [Unknown]
  - Uveitis [Recovered/Resolved]
  - Therapeutic response decreased [Unknown]

NARRATIVE: CASE EVENT DATE: 20161122
